FAERS Safety Report 5616321-0 (Version None)
Quarter: 2008Q1

REPORT INFORMATION
  Report Type: 
  Country: None (occurrence: None)
  Receive Date: 20080204
  Receipt Date: 20080130
  Transmission Date: 20080703
  Serious: Yes (Hospitalization)
  Sender: FDA-Public Use
  Company Number: 023280

PATIENT
  Age: 63 Year
  Sex: Male
  Weight: 72.1 kg

DRUGS (4)
  1. METHOTREXATE [Suspect]
     Indication: CENTRAL NERVOUS SYSTEM LYMPHOMA
     Dosage: 7000 MG
     Dates: start: 20071128, end: 20071219
  2. TEMODAR [Suspect]
     Indication: CENTRAL NERVOUS SYSTEM LYMPHOMA
     Dosage: 1000 MG, ORAL
     Route: 048
     Dates: start: 20071226, end: 20071230
  3. DEXAMETHASONE TAB [Suspect]
  4. ENOXAPARIN SODIUM [Concomitant]

REACTIONS (8)
  - BLOOD LACTATE DEHYDROGENASE INCREASED [None]
  - DISEASE PROGRESSION [None]
  - HYPERGLYCAEMIA [None]
  - IIIRD NERVE PARALYSIS [None]
  - MUSCULAR WEAKNESS [None]
  - NECK PAIN [None]
  - NEUROLOGICAL SYMPTOM [None]
  - VITH NERVE PARALYSIS [None]
